FAERS Safety Report 26145805 (Version 1)
Quarter: 2025Q4

REPORT INFORMATION
  Report Type: Spontaneous
  Country: US (occurrence: US)
  Receive Date: 20251211
  Receipt Date: 20251211
  Transmission Date: 20260118
  Serious: No
  Sender: GERON CORP
  Company Number: US-GERON-INTAKE-US-2104-2025

PATIENT
  Age: 60 Year
  Sex: Male

DRUGS (3)
  1. RYTELO [Suspect]
     Active Substance: IMETELSTAT SODIUM
     Indication: Myelodysplastic syndrome
     Dosage: 47 MILLIGRAM/KILOGRAM, 4W
     Route: 042
     Dates: start: 20250117, end: 20250117
  2. RYTELO [Suspect]
     Active Substance: IMETELSTAT SODIUM
     Dosage: 188 MILLIGRAM/KILOGRAM, 4W
     Route: 042
     Dates: start: 20250117, end: 20250117
  3. RYTELO [Suspect]
     Active Substance: IMETELSTAT SODIUM
     Dosage: 503 MILLIGRAM/KILOGRAM, 4W
     Route: 042
     Dates: start: 20250117, end: 20250117

REACTIONS (2)
  - Full blood count decreased [Recovered/Resolved]
  - Ill-defined disorder [Recovered/Resolved]

NARRATIVE: CASE EVENT DATE: 20250117
